FAERS Safety Report 8256834-9 (Version None)
Quarter: 2012Q1

REPORT INFORMATION
  Report Type: 
  Country: None (occurrence: None)
  Receive Date: 20120330
  Receipt Date: 20120330
  Transmission Date: 20120608
  Serious: Yes (Other)
  Sender: FDA-Public Use
  Company Number: None

PATIENT
  Age: 84 Year
  Sex: Female
  Weight: 70.3075 kg

DRUGS (4)
  1. VENTOLIN HFA [Suspect]
     Indication: WHEEZING
     Dosage: 4/DAY
     Dates: start: 20120213, end: 20120217
  2. VENTOLIN HFA [Suspect]
     Indication: COUGH
     Dosage: 4/DAY
     Dates: start: 20120213, end: 20120217
  3. SYMBICORT [Suspect]
     Indication: COUGH
     Dosage: 2/DAY - 2 PUFFS
     Dates: start: 20120206, end: 20120210
  4. SYMBICORT [Suspect]
     Indication: WHEEZING
     Dosage: 2/DAY - 2 PUFFS
     Dates: start: 20120206, end: 20120210

REACTIONS (9)
  - LIP BLISTER [None]
  - TONGUE ULCERATION [None]
  - DISCOMFORT [None]
  - LIP EXFOLIATION [None]
  - LIP SWELLING [None]
  - MOUTH ULCERATION [None]
  - CANDIDIASIS [None]
  - ORAL PAIN [None]
  - ORAL HERPES [None]
